FAERS Safety Report 8079042-3 (Version None)
Quarter: 2012Q1

REPORT INFORMATION
  Report Type: 
  Country: None (occurrence: None)
  Receive Date: 20120128
  Receipt Date: 20110707
  Transmission Date: 20120608
  Serious: No
  Sender: FDA-Public Use
  Company Number: US-ABBOTT-11P-163-0836660-00

PATIENT

DRUGS (5)
  1. SOMA [Concomitant]
     Indication: ANKYLOSING SPONDYLITIS
  2. HUMIRA [Suspect]
     Indication: ANKYLOSING SPONDYLITIS
     Dates: start: 20100601, end: 20110515
  3. CAPADEX [Concomitant]
     Indication: GASTROOESOPHAGEAL REFLUX DISEASE
  4. MORPHINE [Concomitant]
     Indication: ANKYLOSING SPONDYLITIS
  5. PERCOCET [Concomitant]
     Indication: ANKYLOSING SPONDYLITIS

REACTIONS (3)
  - CHEST DISCOMFORT [None]
  - COUGH [None]
  - FEELING ABNORMAL [None]
